FAERS Safety Report 24020303 (Version 1)
Quarter: 2024Q2

REPORT INFORMATION
  Report Type: Spontaneous
  Country: CN (occurrence: CN)
  Receive Date: 20240627
  Receipt Date: 20240627
  Transmission Date: 20240716
  Serious: Yes (Other)
  Sender: FDA-Public Use
  Company Number: CN-BAYER-2024A091307

PATIENT
  Age: 18 Year
  Sex: Female
  Weight: 50 kg

DRUGS (1)
  1. YAZ [Suspect]
     Active Substance: DROSPIRENONE\ETHINYL ESTRADIOL
     Indication: Menstrual cycle management
     Dosage: 1 DF, QD
     Route: 048
     Dates: start: 20240612, end: 20240613

REACTIONS (3)
  - Dermatitis allergic [Recovering/Resolving]
  - Rash papular [Recovering/Resolving]
  - Off label use [None]

NARRATIVE: CASE EVENT DATE: 20240612
